FAERS Safety Report 6151664-6 (Version None)
Quarter: 2009Q2

REPORT INFORMATION
  Report Type: 
  Country: None (occurrence: None)
  Receive Date: 20090410
  Receipt Date: 20090410
  Transmission Date: 20091009
  Serious: Yes (Other)
  Sender: FDA-Public Use
  Company Number: US-PFIZER INC-2008088403

PATIENT

DRUGS (2)
  1. CHANTIX [Suspect]
     Dates: start: 20080501, end: 20080601
  2. ANALGESICS [Suspect]
     Indication: PAIN

REACTIONS (18)
  - ACTIVITIES OF DAILY LIVING IMPAIRED [None]
  - ALOPECIA [None]
  - CHEST PAIN [None]
  - COLD SWEAT [None]
  - CRYING [None]
  - DYSPNOEA [None]
  - DYSSTASIA [None]
  - GASTRIC DISORDER [None]
  - IMPAIRED WORK ABILITY [None]
  - JOINT SWELLING [None]
  - MUSCLE SPASMS [None]
  - NERVOUS SYSTEM DISORDER [None]
  - OSTEOPOROSIS [None]
  - PAIN [None]
  - PANIC REACTION [None]
  - REFUSAL OF TREATMENT BY PATIENT [None]
  - SPINAL OPERATION [None]
  - VOMITING [None]
